FAERS Safety Report 13648217 (Version 2)
Quarter: 2017Q3

REPORT INFORMATION
  Report Type: Spontaneous
  Country: FR (occurrence: FR)
  Receive Date: 20170613
  Receipt Date: 20170922
  Transmission Date: 20171127
  Serious: Yes (Other)
  Sender: FDA-Public Use
  Company Number: FR-BAYER-2017-105936

PATIENT
  Age: 46 Year
  Sex: Female

DRUGS (2)
  1. MIRENA [Suspect]
     Active Substance: LEVONORGESTREL
     Dosage: 20 MCG/24HR, CONT
     Route: 015
     Dates: start: 2011
  2. MIRENA [Suspect]
     Active Substance: LEVONORGESTREL
     Dosage: 20 MCG/24HR, CONT
     Route: 015
     Dates: start: 20161107

REACTIONS (8)
  - Large intestine perforation [Recovered/Resolved]
  - Bipolar disorder [Recovered/Resolved]
  - Vision blurred [None]
  - Abdominal distension [Not Recovered/Not Resolved]
  - Affective disorder [Recovered/Resolved]
  - Dizziness [Recovered/Resolved]
  - Hot flush [None]
  - Asthenia [Recovered/Resolved]

NARRATIVE: CASE EVENT DATE: 2011
